FAERS Safety Report 11406494 (Version 2)
Quarter: 2016Q1

REPORT INFORMATION
  Report Type: Report from Study
  Country: US (occurrence: US)
  Receive Date: 20150821
  Receipt Date: 20160321
  Transmission Date: 20160525
  Serious: Yes (Life-Threatening, Hospitalization)
  Sender: FDA-Public Use
  Company Number: US-TARO-2015TAR00786

PATIENT
  Age: 64 Year
  Sex: Male

DRUGS (5)
  1. CHOLECALCIFEROL [Concomitant]
     Active Substance: CHOLECALCIFEROL
     Dosage: 400 UNIT CAPSULE
     Route: 048
     Dates: start: 2014, end: 20150814
  2. ADVIL [Concomitant]
     Active Substance: IBUPROFEN
     Dosage: 400 MG, AS NEEDED
     Route: 048
     Dates: start: 2013, end: 20150712
  3. DICLOFENAC SODIUM GEL 1% [Suspect]
     Active Substance: DICLOFENAC SODIUM
     Indication: OSTEOARTHRITIS
     Dosage: 4 G, 4X/DAY
     Route: 061
     Dates: start: 20150702, end: 20150812
  4. PEPCID AC [Concomitant]
     Active Substance: FAMOTIDINE
     Dosage: 20 MG, 1X/DAY
     Route: 048
     Dates: start: 1995
  5. TYLENOL PM [Concomitant]
     Active Substance: ACETAMINOPHEN\DIPHENHYDRAMINE
     Dosage: UNK
     Dates: end: 20150814

REACTIONS (1)
  - Acute myocardial infarction [Recovered/Resolved]

NARRATIVE: CASE EVENT DATE: 20150812
